FAERS Safety Report 24723377 (Version 1)
Quarter: 2024Q4

REPORT INFORMATION
  Report Type: Spontaneous
  Country: US (occurrence: US)
  Receive Date: 20241211
  Receipt Date: 20241211
  Transmission Date: 20250115
  Serious: No
  Sender: SANOFI AVENTIS
  Company Number: US-SA-2024SA365994

PATIENT
  Sex: Female
  Weight: 61.36 kg

DRUGS (4)
  1. DUPIXENT [Suspect]
     Active Substance: DUPILUMAB
     Indication: Asthma
     Dosage: 300 MG, QOW
  2. ECOTRIN [Concomitant]
     Active Substance: ASPIRIN
     Dosage: UNK
  3. PROBIOTICS NOS [Concomitant]
     Active Substance: PROBIOTICS NOS
     Dosage: UNK
  4. PREBIOTICS NOS [Concomitant]
     Dosage: UNK

REACTIONS (2)
  - Otorrhoea [Unknown]
  - Oropharyngeal pain [Unknown]
